FAERS Safety Report 8759556 (Version 2)
Quarter: 2012Q4

REPORT INFORMATION
  Report Type: 
  Country: CA (occurrence: CA)
  Receive Date: 20120829
  Receipt Date: 20120829
  Transmission Date: 20130627
  Serious: Yes (Other)
  Sender: FDA-Public Use
  Company Number: PHHY2011CA73844

PATIENT
  Sex: Female

DRUGS (2)
  1. ACLASTA [Suspect]
     Indication: OSTEOPOROSIS
     Dosage: UNK
     Route: 042
     Dates: start: 20100913
  2. ACLASTA [Suspect]
     Dosage: UNK
     Route: 042
     Dates: start: 20110912

REACTIONS (2)
  - Serum ferritin decreased [Unknown]
  - Blood glucose increased [Unknown]
